FAERS Safety Report 17185634 (Version 1)
Quarter: 2019Q4

REPORT INFORMATION
  Report Type: Report from Study
  Country: IT (occurrence: IT)
  Receive Date: 20191220
  Receipt Date: 20191220
  Transmission Date: 20200122
  Serious: Yes (Hospitalization)
  Sender: FDA-Public Use
  Company Number: IT-MYLANLABS-2019M1125793

PATIENT
  Age: 60 Year
  Sex: Male

DRUGS (2)
  1. LEVOFLOXACIN. [Suspect]
     Active Substance: LEVOFLOXACIN
     Indication: BRONCHOPNEUMOPATHY
     Dosage: 1 DOSAGE FORM, QD
     Route: 048
     Dates: start: 20190614, end: 20190701
  2. DELTACORTENE [Concomitant]
     Active Substance: PREDNISONE
     Indication: BRONCHOPNEUMOPATHY
     Dosage: 25 MILLIGRAM
     Route: 048
     Dates: start: 20190614

REACTIONS (2)
  - Loss of consciousness [Recovering/Resolving]
  - Pyrexia [Recovering/Resolving]

NARRATIVE: CASE EVENT DATE: 20190701
